FAERS Safety Report 5449529-8 (Version None)
Quarter: 2007Q3

REPORT INFORMATION
  Report Type: 
  Country: None (occurrence: None)
  Receive Date: 20070907
  Receipt Date: 20070829
  Transmission Date: 20080115
  Serious: Yes (Hospitalization)
  Sender: FDA-Public Use
  Company Number: JPI-P-002079

PATIENT
  Age: 36 Year
  Sex: Female
  Weight: 52.6173 kg

DRUGS (8)
  1. XYREM [Suspect]
     Indication: NARCOLEPSY
     Dosage: 3 GM (1.5 GM, 2 IN 1 D), ORAL
     Route: 048
     Dates: start: 20070720, end: 20070802
  2. XYREM [Suspect]
     Indication: SLEEP DISORDER
     Dosage: 3 GM (1.5 GM, 2 IN 1 D), ORAL
     Route: 048
     Dates: start: 20070720, end: 20070802
  3. ZIPRASIDONE HCL [Concomitant]
  4. VENLAFAXIINE HCL [Concomitant]
  5. LAMOTRIGINE [Concomitant]
  6. DIAZEPAM [Concomitant]
  7. BUPROPION HYDROCHLORIDE [Concomitant]
  8. LEVOTHYROXINE SODIUM [Concomitant]

REACTIONS (3)
  - BIPOLAR DISORDER [None]
  - DISEASE RECURRENCE [None]
  - HYPERSENSITIVITY [None]
